FAERS Safety Report 4277577-2 (Version None)
Quarter: 2004Q1

REPORT INFORMATION
  Report Type: 
  Country: None (occurrence: None)
  Receive Date: 20040122
  Receipt Date: 20031030
  Transmission Date: 20041129
  Serious: Yes (Hospitalization)
  Sender: FDA-Public Use
  Company Number: WAES 0310GBR00348

PATIENT
  Age: 53 Year
  Sex: Male
  Weight: 60 kg

DRUGS (6)
  1. FOSAMAX [Suspect]
     Indication: OSTEOPOROSIS
     Route: 048
     Dates: start: 20030901, end: 20030901
  2. ASPIRIN [Concomitant]
     Dates: start: 19970101
  3. CARVEDILOL [Concomitant]
     Dates: start: 19970101
  4. CARVEDILOL [Concomitant]
     Dates: start: 19970101
  5. COZAAR [Concomitant]
     Dates: start: 19970101
  6. SIMVASTATIN [Concomitant]
     Dates: start: 19970101

REACTIONS (2)
  - CARDIAC FAILURE CONGESTIVE [None]
  - DYSPNOEA [None]
